FAERS Safety Report 5009672-4 (Version None)
Quarter: 2006Q2

REPORT INFORMATION
  Report Type: 
  Country: None (occurrence: None)
  Receive Date: 20060524
  Receipt Date: 20060517
  Transmission Date: 20061013
  Serious: Yes (Death, Hospitalization)
  Sender: FDA-Public Use
  Company Number: PHBS2006IT07357

PATIENT
  Age: 60 Year
  Sex: Female

DRUGS (8)
  1. LASIX [Concomitant]
     Dosage: 25 MG/D
     Route: 048
  2. MEDROL [Concomitant]
     Dosage: 16 MG/D
     Route: 048
  3. DEXTROMETHORPHAN [Concomitant]
     Dosage: 40 DROPS/D
     Route: 048
  4. PARAPLATIN [Concomitant]
     Dosage: 400 MG/D
     Route: 042
     Dates: start: 20060222, end: 20060222
  5. VEPESID [Concomitant]
     Dosage: 190 MG/D
     Route: 042
  6. TOLEP [Suspect]
     Indication: EPILEPSY
     Dosage: 300 MG/D
     Route: 048
     Dates: start: 20060308, end: 20060321
  7. TRIATEC [Concomitant]
     Dosage: 2.5 MG/D
     Route: 048
  8. LOPRESSOR [Concomitant]
     Dosage: 100 MG/D
     Route: 048

REACTIONS (4)
  - DEATH [None]
  - NEUTROPHIL COUNT INCREASED [None]
  - RED BLOOD CELL COUNT DECREASED [None]
  - THROMBOCYTOPENIA [None]
